FAERS Safety Report 22102498 (Version 2)
Quarter: 2023Q2

REPORT INFORMATION
  Report Type: Spontaneous
  Country: PT (occurrence: PT)
  Receive Date: 20230316
  Receipt Date: 20230417
  Transmission Date: 20230722
  Serious: Yes (Other)
  Sender: FDA-Public Use
  Company Number: None

PATIENT
  Age: 76 Year
  Sex: Female

DRUGS (10)
  1. CLARITHROMYCIN [Suspect]
     Active Substance: CLARITHROMYCIN
     Indication: Sinusitis
     Dosage: 500 MILLIGRAM, BID, 1 TABLET 2XDAY, UNTIL FINISH
     Route: 048
     Dates: start: 20230215, end: 20230219
  2. BROTIZOLAM [Concomitant]
     Active Substance: BROTIZOLAM
     Dosage: UNK
     Route: 048
  3. TEGRETOL [Concomitant]
     Active Substance: CARBAMAZEPINE
     Dosage: UNK
     Route: 048
  4. ALPRAZOLAM [Concomitant]
     Active Substance: ALPRAZOLAM
     Dosage: UNK
     Route: 048
  5. DEFLAZACORT [Concomitant]
     Active Substance: DEFLAZACORT
     Indication: Sinusitis
     Dosage: 1 TABLET 3XDAY, UNTIL FINISHED (2 TABLETS LEFT)
     Route: 048
     Dates: start: 20230215, end: 20230220
  6. HYDROCHLOROTHIAZIDE\OLMESARTAN MEDOXOMIL [Concomitant]
     Active Substance: HYDROCHLOROTHIAZIDE\OLMESARTAN MEDOXOMIL
     Dosage: UNK, STRENGTH 40 MG + 12.5 MG
     Route: 048
  7. DYMISTALAN [Concomitant]
     Indication: Sinusitis
     Dosage: 1 PUMP IN EACH NOSTRIL 3XDAY, FOR 29 DAYS
     Route: 045
     Dates: start: 20230215
  8. XYZAL [Concomitant]
     Active Substance: LEVOCETIRIZINE DIHYDROCHLORIDE
     Indication: Sinusitis
     Dosage: 5 MILLIGRAM, BID, 1 TABLET 2XDAY, ONLY 8 DAYS
     Route: 048
     Dates: start: 20230215, end: 20230222
  9. PANTOPRAZOLE SODIUM [Concomitant]
     Active Substance: PANTOPRAZOLE SODIUM
     Dosage: UNK
     Route: 048
  10. ETHYL LOFLAZEPATE [Concomitant]
     Active Substance: ETHYL LOFLAZEPATE
     Dosage: UNK
     Route: 048

REACTIONS (7)
  - Gastrointestinal pain [Recovered/Resolved]
  - Dysphagia [Recovered/Resolved]
  - Throat irritation [Recovered/Resolved]
  - Oral mucosal blistering [Recovered/Resolved]
  - Vulvovaginal inflammation [Recovered/Resolved]
  - Stomatitis [Recovered/Resolved]
  - Abdominal pain upper [Recovered/Resolved]

NARRATIVE: CASE EVENT DATE: 20230220
